FAERS Safety Report 16171843 (Version 1)
Quarter: 2019Q2

REPORT INFORMATION
  Report Type: Spontaneous
  Country: ES (occurrence: ES)
  Receive Date: 20190408
  Receipt Date: 20190408
  Transmission Date: 20190711
  Serious: Yes (Other)
  Sender: FDA-Public Use
  Company Number: ES-ABBVIE-19K-144-2732933-00

PATIENT
  Sex: Female

DRUGS (1)
  1. MAVIRET [Suspect]
     Active Substance: GLECAPREVIR\PIBRENTASVIR
     Indication: PRODUCT USED FOR UNKNOWN INDICATION
     Route: 048
     Dates: start: 20180113, end: 2018

REACTIONS (5)
  - Gastritis [Unknown]
  - Gastrooesophageal reflux disease [Unknown]
  - Portal hypertension [Unknown]
  - Nervousness [Unknown]
  - Fibrosis [Unknown]

NARRATIVE: CASE EVENT DATE: 201812
